FAERS Safety Report 5453592-8 (Version None)
Quarter: 2007Q3

REPORT INFORMATION
  Report Type: 
  Country: None (occurrence: None)
  Receive Date: 20070917
  Receipt Date: 20070910
  Transmission Date: 20080115
  Serious: Yes (Other)
  Sender: FDA-Public Use
  Company Number: FR-RB-007936-07

PATIENT
  Age: 41 Year
  Sex: Male

DRUGS (5)
  1. SUBUTEX [Suspect]
     Indication: DRUG USE FOR UNKNOWN INDICATION
     Route: 065
  2. VALIUM [Concomitant]
     Indication: DRUG USE FOR UNKNOWN INDICATION
     Dosage: 1 TO 8 DF QD.
     Route: 065
  3. TERCIAN [Concomitant]
     Indication: DRUG USE FOR UNKNOWN INDICATION
     Dosage: 1 TO 8 DF PRN.
     Route: 065
  4. NEOCODION [Concomitant]
     Indication: DRUG USE FOR UNKNOWN INDICATION
     Dosage: 10 BOXES EACH, QM, OF NEOCODIN AND CODOLIPRANE. ACTUAL DOSAGE UNKNOWN.
     Route: 065
  5. CODOLIPRANE [Concomitant]
     Indication: DRUG USE FOR UNKNOWN INDICATION
     Dosage: 10 BOXES EACH, QM, OF NEOCODIN AND CODOLIPRANE. ACTUAL DOSAGE UNKNOWN.
     Route: 065

REACTIONS (2)
  - DRUG WITHDRAWAL SYNDROME [None]
  - SUICIDAL IDEATION [None]
